FAERS Safety Report 5125272-X (Version None)
Quarter: 2006Q4

REPORT INFORMATION
  Report Type: 
  Country: None (occurrence: None)
  Receive Date: 20061006
  Receipt Date: 20060929
  Transmission Date: 20070319
  Serious: Yes (Other)
  Sender: FDA-Public Use
  Company Number: 2006117829

PATIENT
  Age: 22 Month
  Sex: Male
  Weight: 11.7935 kg

DRUGS (1)
  1. CHILDREN'S PEDIACARE MULTI-SYMPTOM COLD (PSEUDOEPHEDRINE, DEXTROMETHOR [Suspect]
     Indication: RHINORRHOEA
     Dosage: 1 TEASPOON ONCE, ORAL
     Route: 048
     Dates: start: 20060928, end: 20060928

REACTIONS (2)
  - MUSCLE RIGIDITY [None]
  - SKIN DISCOLOURATION [None]
